FAERS Safety Report 5456662-3 (Version None)
Quarter: 2007Q3

REPORT INFORMATION
  Report Type: 
  Country: None (occurrence: None)
  Receive Date: 20070918
  Receipt Date: 20061117
  Transmission Date: 20080115
  Serious: Yes (Other)
  Sender: FDA-Public Use
  Company Number: US-ASTRAZENECA-2006UW25558

PATIENT
  Age: 48 Year
  Sex: Female
  Weight: 78 kg

DRUGS (4)
  1. SEROQUEL [Suspect]
     Route: 048
  2. CORTICOSTEROID INJECTION [Concomitant]
  3. ABILIFY [Concomitant]
  4. FLEXERIL [Concomitant]

REACTIONS (1)
  - DIABETES MELLITUS [None]
